FAERS Safety Report 9676236 (Version 2)
Quarter: 2014Q2

REPORT INFORMATION
  Report Type: Spontaneous
  Country: US (occurrence: US)
  Receive Date: 20131107
  Receipt Date: 20140425
  Transmission Date: 20141212
  Serious: Yes (Death, Hospitalization, Other)
  Sender: FDA-Public Use
  Company Number: US-B.I. PHARMACEUTICALS,INC./RIDGEFIELD-2013-BI-35452BP

PATIENT
  Sex: Male
  Weight: 52.16 kg

DRUGS (5)
  1. PRADAXA [Suspect]
     Indication: ATRIAL FIBRILLATION
     Dosage: 300 MG
     Route: 065
     Dates: start: 20120626, end: 20120802
  2. LASIX [Concomitant]
     Dosage: 40 MG
     Route: 048
  3. METOPROLOL [Concomitant]
     Dosage: 25 MG
     Route: 065
  4. ENALAPRIL [Concomitant]
     Dosage: 2.5 MG
     Route: 065
  5. K+10 [Concomitant]
     Dosage: 20 MEQ
     Route: 048

REACTIONS (8)
  - Coagulopathy [Fatal]
  - Renal failure acute [Fatal]
  - Respiratory failure [Fatal]
  - Haemorrhage [Unknown]
  - Cardiac failure congestive [Unknown]
  - Anaemia [Unknown]
  - Hepatic failure [Unknown]
  - Ecchymosis [Unknown]
